FAERS Safety Report 5245473-X (Version None)
Quarter: 2007Q1

REPORT INFORMATION
  Report Type: 
  Country: None (occurrence: None)
  Receive Date: 20070223
  Receipt Date: 20070216
  Transmission Date: 20070707
  Serious: Yes (Hospitalization)
  Sender: FDA-Public Use
  Company Number: CH-ELI_LILLY_AND_COMPANY-CH200702003321

PATIENT
  Age: 75 Year
  Sex: Male

DRUGS (8)
  1. GEMZAR [Suspect]
     Indication: LUNG CARCINOMA CELL TYPE UNSPECIFIED STAGE 0
     Dosage: 1 CYCLES / 30% OF NORMAL DOSE
     Route: 042
     Dates: start: 20060518
  2. NAVELBINE [Concomitant]
     Indication: LUNG CARCINOMA CELL TYPE UNSPECIFIED STAGE 0
     Dosage: UNK, UNK
     Route: 042
     Dates: start: 20060406, end: 20060412
  3. CARBOPLATIN EBEWE [Concomitant]
     Indication: LUNG CARCINOMA CELL TYPE UNSPECIFIED STAGE 0
     Dosage: UNK, UNK
     Dates: start: 20060406, end: 20060412
  4. DILZEM - SLOW RELEASE [Concomitant]
     Dosage: 90 MG, DAILY (1/D)
     Route: 048
  5. OMED [Concomitant]
     Dosage: 20 MG, DAILY (1/D)
     Route: 048
  6. ASPIRIN [Concomitant]
     Dosage: 100 MG, DAILY (1/D)
     Route: 048
  7. COVERSUM [Concomitant]
     Dosage: 4 MG, DAILY (1/D)
     Route: 048
  8. NITRODERM [Concomitant]
     Dosage: 25 MG, UNK
     Route: 062

REACTIONS (2)
  - AGRANULOCYTOSIS [None]
  - DIARRHOEA [None]
